FAERS Safety Report 16083402 (Version 3)
Quarter: 2019Q4

REPORT INFORMATION
  Report Type: Spontaneous
  Country: IT (occurrence: IT)
  Receive Date: 20190318
  Receipt Date: 20191024
  Transmission Date: 20200122
  Serious: Yes (Hospitalization, Other)
  Sender: FDA-Public Use
  Company Number: IT-AUROBINDO-AUR-APL-2019-013487

PATIENT
  Age: 32 Year
  Sex: Male

DRUGS (1)
  1. CITALOPRAM [Suspect]
     Active Substance: CITALOPRAM HYDROBROMIDE
     Indication: OBSESSIVE-COMPULSIVE DISORDER
     Dosage: 60 MILLIGRAM, DAILY
     Route: 065

REACTIONS (3)
  - Mania [Recovered/Resolved]
  - Bipolar disorder [Recovering/Resolving]
  - Unmasking of previously unidentified disease [Recovered/Resolved]
